FAERS Safety Report 4733093-2 (Version None)
Quarter: 2005Q3

REPORT INFORMATION
  Report Type: 
  Country: None (occurrence: None)
  Receive Date: 20050725
  Receipt Date: 20040714
  Transmission Date: 20060218
  Serious: Yes (Death)
  Sender: FDA-Public Use
  Company Number: USA-2004-0016370

PATIENT
  Age: 51 Year
  Sex: Female

DRUGS (11)
  1. MS CONTIN [Suspect]
     Dosage: 100 MG, BID
  2. MORPHINE SULFATE [Suspect]
     Dosage: 10 MG, SEE TEXT
  3. MIRALAX [Concomitant]
  4. CALCET [Concomitant]
  5. KLONOPIN [Concomitant]
  6. DOMPERIDONE [Concomitant]
  7. MIGRANAL [Concomitant]
  8. BIAXIN [Concomitant]
  9. DIFLUCAN [Concomitant]
  10. MOTRIN [Concomitant]
  11. ZANAFLEX [Concomitant]

REACTIONS (1)
  - MULTIPLE DRUG OVERDOSE [None]
